FAERS Safety Report 9525648 (Version 1)
Quarter: 2013Q1

REPORT INFORMATION
  Report Type: Spontaneous
  Country: US (occurrence: None)
  Receive Date: 20130314
  Receipt Date: 20130314
  Transmission Date: 20140127
  Serious: Yes (Other)
  Sender: FDA-Public Use
  Company Number: 1301USA011711

PATIENT
  Age: 63 Year
  Sex: Male

DRUGS (1)
  1. VICTRELIS (BOCEPREVIR) CAPSULE, 200MG [Suspect]
     Indication: HEPATITIS C
     Route: 048
     Dates: start: 201210

REACTIONS (1)
  - Diarrhoea [None]
